FAERS Safety Report 17300139 (Version 1)
Quarter: 2020Q1

REPORT INFORMATION
  Report Type: Spontaneous
  Country: FR (occurrence: FR)
  Receive Date: 20200122
  Receipt Date: 20200122
  Transmission Date: 20200409
  Serious: Yes (Other)
  Sender: FDA-Public Use
  Company Number: FR-PFIZER INC-2020026832

PATIENT
  Age: 81 Year
  Sex: Female

DRUGS (13)
  1. LERCAN [Concomitant]
     Active Substance: LERCANIDIPINE
     Dosage: UNK
  2. FLECAINE [Concomitant]
     Active Substance: FLECAINIDE
     Dosage: UNK
  3. CACIT [Concomitant]
     Dosage: UNK
  4. ENALAPRIL [Concomitant]
     Active Substance: ENALAPRIL
     Dosage: UNK
  5. UVEDOSE [Concomitant]
     Active Substance: CHOLECALCIFEROL
     Dosage: UNK
  6. GABAPENTINE [Concomitant]
     Active Substance: GABAPENTIN
     Dosage: UNK
  7. PREVISCAN [Concomitant]
     Dosage: UNK
  8. SELOKEN [Concomitant]
     Active Substance: METOPROLOL
     Dosage: UNK
  9. CYMBALTA [Concomitant]
     Active Substance: DULOXETINE HYDROCHLORIDE
     Dosage: UNK
  10. HYPERIUM [Concomitant]
     Active Substance: RILMENIDINE PHOSPHATE
     Dosage: UNK
  11. DOLIPRANE [Concomitant]
     Active Substance: ACETAMINOPHEN
     Dosage: UNK
  12. XELJANZ [Suspect]
     Active Substance: TOFACITINIB CITRATE
     Dosage: 5 MG, 2X/DAY
     Dates: start: 20190920
  13. PROLIA [Concomitant]
     Active Substance: DENOSUMAB
     Dosage: UNK

REACTIONS (1)
  - Thrombocytopenia [Unknown]

NARRATIVE: CASE EVENT DATE: 20191217
